FAERS Safety Report 9671435 (Version 2)
Quarter: 2013Q4

REPORT INFORMATION
  Report Type: Spontaneous
  Country: DE (occurrence: DE)
  Receive Date: 20131106
  Receipt Date: 20131203
  Transmission Date: 20140711
  Serious: Yes (Other)
  Sender: FDA-Public Use
  Company Number: DE-PFIZER INC-2013314728

PATIENT
  Age: 42 Year
  Sex: Female
  Weight: 103 kg

DRUGS (3)
  1. PANTOPRAZOLE [Suspect]
     Indication: PROPHYLAXIS AGAINST GASTROINTESTINAL ULCER
     Dosage: 40 MG, QD
     Route: 042
     Dates: start: 20130811, end: 20131002
  2. PANTOPRAZOLE [Suspect]
     Dosage: 40 MG, QD
     Route: 048
     Dates: start: 20130811, end: 20131002
  3. NOVAMINOSULFON [Suspect]
     Indication: ANALGESIC THERAPY
     Dosage: 1 G, 4X/DAY
     Route: 042
     Dates: start: 20130821, end: 20131002

REACTIONS (1)
  - Agranulocytosis [Recovered/Resolved]
